FAERS Safety Report 20212260 (Version 9)
Quarter: 2022Q3

REPORT INFORMATION
  Report Type: Report from Study
  Country: CA (occurrence: CA)
  Receive Date: 20211221
  Receipt Date: 20220728
  Transmission Date: 20221026
  Serious: Yes (Other)
  Sender: FDA-Public Use
  Company Number: CA-UCBSA-2021058107

PATIENT
  Sex: Female

DRUGS (3)
  1. CERTOLIZUMAB PEGOL [Suspect]
     Active Substance: CERTOLIZUMAB PEGOL
     Indication: Psoriasis
     Dosage: 400 MILLIGRAM, EV 2 WEEKS(QOW)
     Route: 058
     Dates: start: 20211112
  2. CERTOLIZUMAB PEGOL [Suspect]
     Active Substance: CERTOLIZUMAB PEGOL
     Indication: Psoriatic arthropathy
     Dosage: 400 MILLIGRAM, EV 2 WEEKS(QOW)
     Route: 058
     Dates: start: 2022, end: 2022
  3. OTEZLA [Concomitant]
     Active Substance: APREMILAST
     Indication: Behcet^s syndrome
     Dosage: UNK

REACTIONS (6)
  - Eczema [Not Recovered/Not Resolved]
  - Mouth ulceration [Unknown]
  - Behcet^s syndrome [Unknown]
  - Pruritus [Unknown]
  - Insomnia [Unknown]
  - COVID-19 [Not Recovered/Not Resolved]
